FAERS Safety Report 17502489 (Version 1)
Quarter: 2020Q1

REPORT INFORMATION
  Report Type: Spontaneous
  Country: CZ (occurrence: CZ)
  Receive Date: 20200305
  Receipt Date: 20200305
  Transmission Date: 20200409
  Serious: Yes (Other)
  Sender: FDA-Public Use
  Company Number: CZ-MYLANLABS-2020M1021699

PATIENT
  Age: 72 Year
  Sex: Female

DRUGS (2)
  1. ERLOTINIB [Suspect]
     Active Substance: ERLOTINIB
     Indication: LUNG ADENOCARCINOMA
     Dosage: UNK , CYCLIC, 3RD LINE OF TREATMENT
     Route: 065
     Dates: start: 201806, end: 201811
  2. PEMETREXED. [Suspect]
     Active Substance: PEMETREXED
     Indication: LUNG ADENOCARCINOMA
     Dosage: UNK, CYCLIC, 4 CYCLES, 2ND LINE OF TREATMENT
     Route: 065
     Dates: start: 201804, end: 201806

REACTIONS (3)
  - Malignant pleural effusion [Unknown]
  - Lung adenocarcinoma [Recovering/Resolving]
  - Malignant neoplasm progression [Unknown]
